FAERS Safety Report 17257266 (Version 1)
Quarter: 2020Q1

REPORT INFORMATION
  Report Type: Report from Study
  Country: CR (occurrence: CR)
  Receive Date: 20200110
  Receipt Date: 20200110
  Transmission Date: 20200409
  Serious: Yes (Other)
  Sender: FDA-Public Use
  Company Number: NVSC2020CR003851

PATIENT
  Sex: Female

DRUGS (1)
  1. SCAPHO [Suspect]
     Active Substance: SECUKINUMAB
     Indication: PSORIATIC ARTHROPATHY
     Dosage: 300 MG, QMO (SUBCUTANEOUS-BENEATH THE SKIN, USUALLY VIA INJECTION)
     Route: 058
     Dates: start: 20170925, end: 20191125

REACTIONS (1)
  - Pulmonary mycosis [Recovered/Resolved]
